FAERS Safety Report 6053641-2 (Version None)
Quarter: 2009Q1

REPORT INFORMATION
  Report Type: 
  Country: None (occurrence: None)
  Receive Date: 20090127
  Receipt Date: 20080107
  Transmission Date: 20090719
  Serious: Yes (Other)
  Sender: FDA-Public Use
  Company Number: US-TEVA-165991USA

PATIENT
  Age: 48 Year
  Sex: Female

DRUGS (1)
  1. COPAXONE [Suspect]
     Indication: MULTIPLE SCLEROSIS
     Route: 058
     Dates: start: 19970101

REACTIONS (4)
  - CHEST PAIN [None]
  - HYPERSENSITIVITY [None]
  - RASH [None]
  - THROAT TIGHTNESS [None]
